FAERS Safety Report 17260116 (Version 2)
Quarter: 2023Q1

REPORT INFORMATION
  Report Type: Spontaneous
  Country: DE (occurrence: DE)
  Receive Date: 20200111
  Receipt Date: 20230302
  Transmission Date: 20230417
  Serious: Yes (Other)
  Sender: FDA-Public Use
  Company Number: DE-EMA-DD-20191219-SAHU_K-142320

PATIENT
  Age: 59 Year
  Sex: Female

DRUGS (3)
  1. DOCETAXEL [Suspect]
     Active Substance: DOCETAXEL
     Indication: Product used for unknown indication
     Route: 065
     Dates: start: 20171108, end: 20180905
  2. NINTEDANIB [Suspect]
     Active Substance: NINTEDANIB
     Indication: Non-small cell lung cancer
     Route: 065
     Dates: start: 20171108, end: 201809
  3. NINTEDANIB [Suspect]
     Active Substance: NINTEDANIB
     Route: 065
     Dates: end: 201906

REACTIONS (6)
  - Diarrhoea [Unknown]
  - Fatigue [Unknown]
  - Disease progression [Unknown]
  - Stomatitis [Unknown]
  - Decreased appetite [Unknown]
  - Hypoaesthesia [Unknown]

NARRATIVE: CASE EVENT DATE: 20200228
